FAERS Safety Report 16223142 (Version 1)
Quarter: 2019Q2

REPORT INFORMATION
  Report Type: Spontaneous
  Country: US (occurrence: US)
  Receive Date: 20190422
  Receipt Date: 20190422
  Transmission Date: 20190711
  Serious: No
  Sender: FDA-Public Use
  Company Number: US-SA-2019SA110103

PATIENT
  Sex: Female

DRUGS (5)
  1. METHOTREXATE. [Concomitant]
     Active Substance: METHOTREXATE
  2. FOLIC ACID. [Concomitant]
     Active Substance: FOLIC ACID
  3. ASHLYNA [Concomitant]
     Active Substance: ETHINYL ESTRADIOL\LEVONORGESTREL
  4. DUPIXENT [Suspect]
     Active Substance: DUPILUMAB
     Indication: ASTHMA
     Dosage: 300 MG, QOW
     Route: 058
  5. VENLAFAXINE [Concomitant]
     Active Substance: VENLAFAXINE HYDROCHLORIDE

REACTIONS (2)
  - Oropharyngeal pain [Recovering/Resolving]
  - Injection site erythema [Recovered/Resolved]
